FAERS Safety Report 4482299-9 (Version None)
Quarter: 2004Q4

REPORT INFORMATION
  Report Type: 
  Country: None (occurrence: None)
  Receive Date: 20041022
  Receipt Date: 20040713
  Transmission Date: 20050328
  Serious: Yes (Disabling)
  Sender: FDA-Public Use
  Company Number: GB-MERCK-0407GBR00141

PATIENT
  Age: 69 Year
  Sex: Female
  Weight: 47 kg

DRUGS (4)
  1. FOSAMAX [Suspect]
     Indication: OSTEOPOROSIS
     Route: 048
     Dates: start: 20040711
  2. DICLOFENAC SODIUM [Concomitant]
     Indication: ARTHRITIS
     Route: 065
     Dates: start: 20040708, end: 20040712
  3. OMEPRAZOLE [Concomitant]
     Route: 065
     Dates: start: 20010101
  4. MIRTAZAPINE [Concomitant]
     Indication: DEPRESSION
     Route: 065

REACTIONS (4)
  - DIFFICULTY IN WALKING [None]
  - JOINT SWELLING [None]
  - MYALGIA [None]
  - PAIN IN EXTREMITY [None]
